FAERS Safety Report 6980411-0 (Version None)
Quarter: 2010Q3

REPORT INFORMATION
  Report Type: 
  Country: None (occurrence: None)
  Receive Date: 20100908
  Receipt Date: 20100824
  Transmission Date: 20110219
  Serious: Yes (Hospitalization)
  Sender: FDA-Public Use
  Company Number: AT-003514

PATIENT
  Sex: Male

DRUGS (2)
  1. FIRMAGON [Suspect]
     Indication: PROSTATE CANCER
     Dosage: (80 MG 1X/MONTH SUBCUTANEOUS)
     Route: 058
     Dates: start: 20100101, end: 20100101
  2. TRENANTONE [Concomitant]

REACTIONS (1)
  - ANAPHYLACTIC SHOCK [None]
